FAERS Safety Report 19381076 (Version 1)
Quarter: 2021Q2

REPORT INFORMATION
  Report Type: Spontaneous
  Country: DE (occurrence: DE)
  Receive Date: 20210607
  Receipt Date: 20210607
  Transmission Date: 20210717
  Serious: Yes (Other)
  Sender: FDA-Public Use
  Company Number: NVSC2021DE124232

PATIENT
  Sex: Male

DRUGS (8)
  1. XIPAMID 1A PHARMA [Suspect]
     Active Substance: XIPAMIDE
     Indication: PRODUCT USED FOR UNKNOWN INDICATION
     Dosage: 1 UNK (1 TABLET 0???0?0 )
     Route: 065
  2. MARCUMAR [Suspect]
     Active Substance: PHENPROCOUMON
     Indication: BLOOD DISORDER
     Dosage: 1 UNK (1 TABLET 0?0?0.25?0)
     Route: 065
  3. ALLOPURINOL HEUMANN [Suspect]
     Active Substance: ALLOPURINOL
     Indication: GOUT
     Dosage: 1 UNK (1 TABLET 0?0???0)
     Route: 065
  4. VALSARTAN DURA [Suspect]
     Active Substance: VALSARTAN
     Indication: BLOOD PRESSURE MEASUREMENT
     Dosage: 1 UNK (1 TABLET 0?0?1?0 )
     Route: 065
  5. L?THYROX HEXAL 112 MIKROGRAMM [Suspect]
     Active Substance: LEVOTHYROXINE SODIUM
     Indication: THYROID DISORDER
     Dosage: 1 UNK (1 TABLET 1?0?0?0)
     Route: 065
  6. DORZOCOMP VISION [Suspect]
     Active Substance: DORZOLAMIDE HYDROCHLORIDE\TIMOLOL MALEATE
     Indication: OCULAR DISCOMFORT
     Dosage: UNK (1?0?1?0)
     Route: 065
  7. METOHEXAL SUCC 47,5 MG RETARDTABLETTEN [Suspect]
     Active Substance: METOPROLOL SUCCINATE
     Indication: BLOOD PRESSURE INCREASED
     Dosage: 1 UNK, QD (1 TABLET 0?0???0)
     Route: 065
  8. TORASEMID AL [Suspect]
     Active Substance: TORSEMIDE
     Indication: PRODUCT USED FOR UNKNOWN INDICATION
     Dosage: 1 UNK (1 TABLET 0?2?0?0)
     Route: 065

REACTIONS (6)
  - Ejection fraction decreased [Unknown]
  - Left ventricular failure [Unknown]
  - Amyloidosis [Unknown]
  - Dizziness [Unknown]
  - Renal impairment [Unknown]
  - N-terminal prohormone brain natriuretic peptide increased [Unknown]
